FAERS Safety Report 4512184-5 (Version None)
Quarter: 2004Q4

REPORT INFORMATION
  Report Type: 
  Country: None (occurrence: None)
  Receive Date: 20041123
  Receipt Date: 20041116
  Transmission Date: 20050328
  Serious: Yes (Hospitalization)
  Sender: FDA-Public Use
  Company Number: FRWYE643916MAR04

PATIENT
  Age: 67 Year
  Sex: Female

DRUGS (2)
  1. WYTENS (BISOPROLOL/HYDROCHLOROTHIAZIDE, TABLET, 0) [Suspect]
     Indication: HYPERTENSION
     Dosage: ORAL
     Route: 048
     Dates: start: 20030830, end: 20030930
  2. FLUVASTATIN SODIUM (FLUVASTATIN SODIUM) [Suspect]
     Indication: HYPERCHOLESTEROLAEMIA
     Dosage: ORAL
     Route: 048
     Dates: start: 20030830, end: 20030930

REACTIONS (7)
  - ABDOMINAL PAIN UPPER [None]
  - CHOLESTASIS [None]
  - CYTOLYTIC HEPATITIS [None]
  - EOSINOPHILIA [None]
  - ESCHERICHIA URINARY TRACT INFECTION [None]
  - PYREXIA [None]
  - RASH MACULAR [None]
